FAERS Safety Report 6912052-5 (Version None)
Quarter: 2010Q3

REPORT INFORMATION
  Report Type: 
  Country: None (occurrence: None)
  Receive Date: 20100806
  Receipt Date: 20071106
  Transmission Date: 20110219
  Serious: No
  Sender: FDA-Public Use
  Company Number: US-PFIZER INC-2007091653

PATIENT
  Sex: Female
  Weight: 76.8 kg

DRUGS (11)
  1. DETROL LA [Suspect]
     Indication: HYPERTONIC BLADDER
     Dates: start: 20071001
  2. DEPAKOTE [Concomitant]
     Indication: BIPOLAR DISORDER
  3. XANAX [Concomitant]
     Indication: ANTICIPATORY ANXIETY
  4. PRILOSEC [Concomitant]
     Indication: DYSPEPSIA
  5. BUSPAR [Concomitant]
     Indication: ANXIETY
  6. IBUPROFEN [Concomitant]
     Indication: BACK DISORDER
  7. PERCOCET [Concomitant]
     Indication: BACK DISORDER
  8. REGLAN [Concomitant]
     Indication: NAUSEA
  9. ALL OTHER THERAPEUTIC PRODUCTS [Concomitant]
  10. AMBIEN [Concomitant]
     Indication: INSOMNIA
  11. ALL OTHER THERAPEUTIC PRODUCTS [Concomitant]
     Indication: HYPERTONIC BLADDER
     Dates: start: 20071001, end: 20071001

REACTIONS (2)
  - DRUG INEFFECTIVE [None]
  - FATIGUE [None]
